FAERS Safety Report 9383525 (Version 5)
Quarter: 2014Q2

REPORT INFORMATION
  Report Type: Report from Study
  Country: DE (occurrence: DE)
  Receive Date: 20130704
  Receipt Date: 20140407
  Transmission Date: 20141212
  Serious: Yes (Hospitalization, Other)
  Sender: FDA-Public Use
  Company Number: DE-ROCHE-1242620

PATIENT
  Age: 70 Year
  Sex: Male
  Weight: 112 kg

DRUGS (10)
  1. RITUXIMAB [Suspect]
     Indication: CHRONIC LYMPHOCYTIC LEUKAEMIA
     Dosage: DOSE: 1 X 852 MG AND 4 X 1136 MG AND LAST DOSE PRIOR TO SAE : 20/MAR/2012.
     Route: 042
     Dates: start: 20111129, end: 20120320
  2. CHLORAMBUCIL [Suspect]
     Indication: CHRONIC LYMPHOCYTIC LEUKAEMIA
     Dosage: LAST DOSE PRIOR TO SAE : 21/FEB/2012, DOSE: 50 -24 MG?FREQ: ON DAYS 1 + 15 OF A 28 DAY CYCLE
     Route: 048
     Dates: start: 20111129, end: 20120221
  3. OFATUMUMAB [Suspect]
     Indication: HAEMOLYSIS
     Route: 065
     Dates: start: 20120723, end: 20130115
  4. HYDROMORPHONE [Concomitant]
     Route: 065
     Dates: start: 20110630
  5. METAMIZOL [Concomitant]
     Route: 065
     Dates: start: 20110630
  6. LYRICA [Concomitant]
     Route: 065
     Dates: start: 201103
  7. ATMADISC [Concomitant]
     Route: 065
     Dates: start: 201103
  8. SIMVA [Concomitant]
     Route: 065
     Dates: start: 2008
  9. ESOMEPRAZOLE [Concomitant]
     Route: 065
     Dates: start: 2011
  10. RAMIPRIL [Concomitant]
     Route: 065
     Dates: start: 2008

REACTIONS (1)
  - Basal cell carcinoma [Recovered/Resolved]
